FAERS Safety Report 9403540 (Version 1)
Quarter: 2013Q3

REPORT INFORMATION
  Report Type: Spontaneous
  Country: FR (occurrence: FR)
  Receive Date: 20130716
  Receipt Date: 20130716
  Transmission Date: 20140515
  Serious: Yes (Hospitalization, Other)
  Sender: FDA-Public Use
  Company Number: FR-PFIZER INC-2013204586

PATIENT
  Age: 10 Day
  Sex: Male
  Weight: 3 kg

DRUGS (3)
  1. XANAX [Suspect]
     Dosage: UNK
     Route: 064
  2. PROZAC [Suspect]
     Dosage: UNK
     Route: 064
  3. NORMISON [Suspect]
     Dosage: UNK
     Route: 064

REACTIONS (5)
  - Tremor [Recovering/Resolving]
  - Insomnia [Recovering/Resolving]
  - Agitation [Recovering/Resolving]
  - Withdrawal syndrome [Unknown]
  - Serum serotonin decreased [Unknown]
